FAERS Safety Report 12394268 (Version 2)
Quarter: 2016Q2

REPORT INFORMATION
  Report Type: Spontaneous
  Country: FR (occurrence: FR)
  Receive Date: 20160523
  Receipt Date: 20160603
  Transmission Date: 20160815
  Serious: Yes (Hospitalization)
  Sender: FDA-Public Use
  Company Number: FR-UCBSA-008422

PATIENT
  Age: 24 Year
  Sex: Male

DRUGS (8)
  1. IOMERON [Suspect]
     Active Substance: IOMEPROL
     Indication: PRODUCT USED FOR UNKNOWN INDICATION
     Dosage: SINGLE USE
     Route: 042
     Dates: start: 20100205, end: 20100205
  2. NIMOTOP [Suspect]
     Active Substance: NIMODIPINE
     Dosage: UNK
     Route: 048
     Dates: start: 20100208, end: 20100212
  3. VISIPAQUE [Suspect]
     Active Substance: IODIXANOL
     Indication: EMBOLISM
     Dosage: UNK
     Route: 013
     Dates: start: 20100205, end: 20100205
  4. PERFALGAN [Concomitant]
     Active Substance: ACETAMINOPHEN
     Indication: PRODUCT USED FOR UNKNOWN INDICATION
     Dosage: UNK
  5. HEPARIN [Concomitant]
     Active Substance: HEPARIN SODIUM
     Indication: PRODUCT USED FOR UNKNOWN INDICATION
     Dosage: UNK
  6. NIMOTOP [Suspect]
     Active Substance: NIMODIPINE
     Indication: ARTERIOGRAM
     Dosage: UNK
     Route: 042
     Dates: start: 20100205, end: 20100208
  7. VISIPAQUE [Suspect]
     Active Substance: IODIXANOL
     Indication: ANEURYSM RUPTURED
     Dosage: 2.5 ML, TOTAL
     Route: 023
     Dates: start: 20100415, end: 20100415
  8. KEPPRA [Suspect]
     Active Substance: LEVETIRACETAM
     Indication: PRODUCT USED FOR UNKNOWN INDICATION
     Dosage: 500 MG; THREE DOSES TAKEN
     Route: 048
     Dates: start: 20100205, end: 20100206

REACTIONS (1)
  - Acute generalised exanthematous pustulosis [Recovered/Resolved]

NARRATIVE: CASE EVENT DATE: 20100206
